FAERS Safety Report 22001757 (Version 1)
Quarter: 2023Q1

REPORT INFORMATION
  Report Type: Spontaneous
  Country: US (occurrence: US)
  Receive Date: 20230216
  Receipt Date: 20230216
  Transmission Date: 20230417
  Serious: Yes (Other)
  Sender: FDA-Public Use
  Company Number: US-TEVA-2023-US-2854696

PATIENT
  Age: 46 Year
  Sex: Female

DRUGS (13)
  1. PREDNISONE [Suspect]
     Active Substance: PREDNISONE
     Indication: Iridocyclitis
     Dosage: }10MG / DAY
     Route: 048
  2. PREDNISONE [Suspect]
     Active Substance: PREDNISONE
     Indication: Optic neuritis
     Dosage: INITIAL DOSAGE NOT STATED
     Route: 048
  3. METHYLPREDNISOLONE [Suspect]
     Active Substance: METHYLPREDNISOLONE
     Indication: Iridocyclitis
     Route: 042
  4. METHYLPREDNISOLONE [Suspect]
     Active Substance: METHYLPREDNISOLONE
     Indication: Optic neuritis
  5. ACTHAR [Suspect]
     Active Substance: CORTICOTROPIN
     Indication: Iridocyclitis
     Dosage: 22.8571 IU (INTERNATIONAL UNIT) DAILY;
     Route: 058
  6. ACTHAR [Suspect]
     Active Substance: CORTICOTROPIN
     Indication: Optic neuritis
     Dosage: 11.4286 IU (INTERNATIONAL UNIT) DAILY;
     Route: 058
  7. ACTHAR [Suspect]
     Active Substance: CORTICOTROPIN
     Dosage: 5.7143 IU (INTERNATIONAL UNIT) DAILY;
     Route: 058
  8. METHOTREXATE [Concomitant]
     Active Substance: METHOTREXATE
     Indication: Iridocyclitis
     Route: 065
  9. METHOTREXATE [Concomitant]
     Active Substance: METHOTREXATE
     Indication: Optic neuritis
  10. MYCOPHENOLATE MOFETIL [Concomitant]
     Active Substance: MYCOPHENOLATE MOFETIL
     Indication: Iridocyclitis
     Route: 065
  11. MYCOPHENOLATE MOFETIL [Concomitant]
     Active Substance: MYCOPHENOLATE MOFETIL
     Indication: Optic neuritis
  12. AZATHIOPRINE [Concomitant]
     Active Substance: AZATHIOPRINE
     Indication: Iridocyclitis
     Route: 065
  13. AZATHIOPRINE [Concomitant]
     Active Substance: AZATHIOPRINE
     Indication: Optic neuritis

REACTIONS (2)
  - Skin hyperpigmentation [Unknown]
  - Hypertension [Unknown]
